FAERS Safety Report 15237968 (Version 2)
Quarter: 2018Q4

REPORT INFORMATION
  Report Type: Spontaneous
  Country: GR (occurrence: GR)
  Receive Date: 20180803
  Receipt Date: 20181010
  Transmission Date: 20190204
  Serious: Yes (Hospitalization, Other)
  Sender: FDA-Public Use
  Company Number: GR-ALLERGAN-1838556US

PATIENT
  Age: 2 Year
  Sex: Female

DRUGS (2)
  1. CEFTAZIDIME;AVIBACTAM - BP [Suspect]
     Active Substance: AVIBACTAM SODIUM\CEFTAZIDIME
     Indication: MENINGITIS BACTERIAL
     Dosage: 62.5MG (50/12.5) / KG /DOSE, THREE TIMES
     Route: 065
  2. CEFTAZIDIME;AVIBACTAM - BP [Suspect]
     Active Substance: AVIBACTAM SODIUM\CEFTAZIDIME
     Indication: ENTEROBACTER SEPSIS

REACTIONS (3)
  - Intracranial pressure increased [Unknown]
  - Off label use [Unknown]
  - Drug ineffective [Unknown]
